FAERS Safety Report 18572717 (Version 2)
Quarter: 2020Q4

REPORT INFORMATION
  Report Type: Spontaneous
  Country: FR (occurrence: FR)
  Receive Date: 20201202
  Receipt Date: 20201209
  Transmission Date: 20210114
  Serious: Yes (Hospitalization, Other)
  Sender: FDA-Public Use
  Company Number: FR-AUROBINDO-AUR-APL-2020-058636

PATIENT
  Age: 54 Year
  Sex: Female
  Weight: 67 kg

DRUGS (4)
  1. PREDNISONE. [Concomitant]
     Active Substance: PREDNISONE
     Dosage: 60 MILLIGRAM, ONCE A DAY
     Route: 065
     Dates: start: 201812
  2. METHOTREXATE. [Concomitant]
     Active Substance: METHOTREXATE
     Indication: NECROTISING MYOSITIS
     Dosage: 25 MILLIGRAM, EVERY WEEK
     Route: 065
     Dates: start: 2003
  3. RISEDRONATE FILM-COATED TABLET 75MG [Suspect]
     Active Substance: RISEDRONIC ACID
     Indication: VITAMIN D DECREASED
     Dosage: 1 DOSAGE FORM
     Route: 065
     Dates: start: 201901, end: 201902
  4. PREDNISONE. [Concomitant]
     Active Substance: PREDNISONE
     Indication: NECROTISING MYOSITIS
     Dosage: 10 MILLIGRAM, ONCE A DAY
     Route: 065
     Dates: start: 2003

REACTIONS (4)
  - Condition aggravated [Recovered/Resolved]
  - Rhabdomyolysis [Recovered/Resolved]
  - Acute phase reaction [Recovered/Resolved]
  - Myositis [Recovered/Resolved]

NARRATIVE: CASE EVENT DATE: 201901
